FAERS Safety Report 8872677 (Version 1)
Quarter: 2012Q4

REPORT INFORMATION
  Report Type: 
  Country: US (occurrence: US)
  Receive Date: 20121026
  Receipt Date: 20121026
  Transmission Date: 20130627
  Serious: No
  Sender: FDA-Public Use
  Company Number: US-AMGEN-USASP2012049338

PATIENT
  Sex: Female
  Weight: 97.51 kg

DRUGS (13)
  1. ENBREL [Suspect]
     Indication: PRODUCT USED FOR UNKNOWN INDICATION
     Dosage: 25 mg, 2 times/wk
     Route: 058
  2. PRILOSEC                           /00661201/ [Concomitant]
     Dosage: 10 mg, UNK
  3. TOPROL [Concomitant]
     Dosage: 25 mg, UNK
  4. LOTREL [Concomitant]
     Dosage: 10-20 mg
  5. PAXIL [Concomitant]
     Dosage: 10 mg, UNK
  6. PREDNISONE [Concomitant]
     Dosage: UNK
  7. PRAVACHOL [Concomitant]
     Dosage: 10 mg, UNK
  8. AMARYL [Concomitant]
     Dosage: 1 mg, UNK
  9. CALCIUM + VIT D [Concomitant]
     Dosage: UNK
  10. CENTRUM                            /07499601/ [Concomitant]
     Dosage: UNK
  11. CALCIUM MAGNESIUM [Concomitant]
     Dosage: UNK
  12. GLUCOCORTICOIDS [Concomitant]
     Dosage: UNK
  13. CHONDROITIN [Concomitant]
     Dosage: UNK

REACTIONS (1)
  - Injection site bruising [Unknown]
